FAERS Safety Report 4871787-9 (Version None)
Quarter: 2006Q1

REPORT INFORMATION
  Report Type: 
  Country: None (occurrence: None)
  Receive Date: 20060104
  Receipt Date: 20051228
  Transmission Date: 20060701
  Serious: Yes (Hospitalization, Disabling)
  Sender: FDA-Public Use
  Company Number: US-GLAXOSMITHKLINE-A0587096A

PATIENT
  Age: 51 Year
  Sex: Female

DRUGS (4)
  1. EPIVIR-HBV [Suspect]
     Dosage: 25ML PER DAY
     Route: 048
  2. NEORAL [Concomitant]
  3. CELLCEPT [Concomitant]
  4. HUMALOG [Concomitant]

REACTIONS (6)
  - CARPAL TUNNEL SYNDROME [None]
  - DISABILITY [None]
  - MEDICATION ERROR [None]
  - OVERDOSE [None]
  - PANCREATIC DISORDER [None]
  - RENAL FAILURE [None]
